FAERS Safety Report 5028001-3 (Version None)
Quarter: 2006Q2

REPORT INFORMATION
  Report Type: 
  Country: None (occurrence: None)
  Receive Date: 20060616
  Receipt Date: 20060607
  Transmission Date: 20061013
  Serious: Yes (Other)
  Sender: FDA-Public Use
  Company Number: 2006AP02723

PATIENT
  Age: 17 Year
  Sex: Female

DRUGS (5)
  1. SEROQUEL [Suspect]
     Indication: ANGER
     Route: 048
     Dates: start: 20060104
  2. SEROQUEL [Suspect]
     Indication: BORDERLINE PERSONALITY DISORDER
     Route: 048
     Dates: start: 20060104
  3. SEROQUEL [Suspect]
     Dosage: 100-150 MG
     Route: 048
  4. SEROQUEL [Suspect]
     Dosage: 100-150 MG
     Route: 048
  5. AURORIX [Concomitant]
     Dosage: HALF A TABLET, TWICE DAILY. DOSE UNKNOWN.
     Route: 048
     Dates: start: 20060201

REACTIONS (4)
  - ARTHRITIS [None]
  - OEDEMA [None]
  - PATELLOFEMORAL PAIN SYNDROME [None]
  - WEIGHT INCREASED [None]
